FAERS Safety Report 7870530-9 (Version None)
Quarter: 2011Q4

REPORT INFORMATION
  Report Type: 
  Country: None (occurrence: None)
  Receive Date: 20111029
  Receipt Date: 20110216
  Transmission Date: 20120403
  Serious: No
  Sender: FDA-Public Use
  Company Number: US-AMGEN-USASP2011009321

PATIENT
  Age: 56 Year
  Sex: Female
  Weight: 46.259 kg

DRUGS (17)
  1. LEUCOVORIN CALCIUM [Concomitant]
     Dosage: 5 MG, UNK
  2. SPIRONOLACTONE [Concomitant]
     Dosage: 25 MG, UNK
  3. CO Q-10 [Concomitant]
  4. METHOTREXATE [Concomitant]
     Dosage: 2.5 MG, UNK
  5. SYNTHROID [Concomitant]
     Dosage: 100 UNK, UNK
  6. TRIAZOLAM [Concomitant]
     Dosage: 0.25 MG, UNK
  7. TYLENOL (CAPLET) [Suspect]
     Dosage: 500 MG, UNK
  8. PREVACID [Concomitant]
     Dosage: 30 MG, UNK
  9. OMEGA 3                            /00931501/ [Concomitant]
     Dosage: 1000 MG, UNK
  10. ENBREL [Suspect]
     Indication: PRODUCT USED FOR UNKNOWN INDICATION
     Dosage: 50 MG, QWK
  11. LISINOPRIL [Concomitant]
     Dosage: 2.5 MG, UNK
  12. CALCIUM +D [Concomitant]
  13. LIPITOR [Concomitant]
     Dosage: 20 MG, UNK
  14. ASPIRIN [Concomitant]
     Dosage: 81 MG, UNK
  15. FOLIC ACID [Concomitant]
     Dosage: 1 MG, UNK
  16. CELEXA [Concomitant]
     Dosage: 10 MG, UNK
  17. MULTIVITAMIN                       /00097801/ [Concomitant]

REACTIONS (1)
  - SENSORY DISTURBANCE [None]
